FAERS Safety Report 21769276 (Version 2)
Quarter: 2023Q1

REPORT INFORMATION
  Report Type: Report from Study
  Country: JP (occurrence: JP)
  Receive Date: 20221223
  Receipt Date: 20230324
  Transmission Date: 20230417
  Serious: Yes (Life-Threatening, Hospitalization, Other)
  Sender: FDA-Public Use
  Company Number: JP-SA-2022SA513025

PATIENT
  Age: 15 Year
  Sex: Male
  Weight: 40.5 kg

DRUGS (14)
  1. ALEMTUZUMAB [Suspect]
     Active Substance: ALEMTUZUMAB
     Indication: Bone marrow conditioning regimen
     Dosage: 0.16 MG/KG, QD
     Route: 041
     Dates: start: 20210624, end: 20210628
  2. HYDROCORTISONE [Suspect]
     Active Substance: HYDROCORTISONE
     Indication: Product used for unknown indication
     Route: 065
  3. CYCLOPHOSPHAMIDE [Suspect]
     Active Substance: CYCLOPHOSPHAMIDE
     Indication: Bone marrow conditioning regimen
     Dosage: DAILY DOSE: 1000 MG
     Route: 042
     Dates: start: 20210420, end: 20210420
  4. CYCLOPHOSPHAMIDE [Suspect]
     Active Substance: CYCLOPHOSPHAMIDE
     Dosage: DAILY DOSE: 1000 MG
     Route: 042
     Dates: start: 20210324, end: 20210324
  5. DOXORUBICIN [Suspect]
     Active Substance: DOXORUBICIN
     Indication: Bone marrow conditioning regimen
     Dosage: DAILY DOSE: 69 MG
     Route: 042
     Dates: start: 20210420, end: 20210420
  6. DOXORUBICIN [Suspect]
     Active Substance: DOXORUBICIN
     Dosage: DAILY DOSE: 69 MG
     Route: 042
     Dates: start: 20210324, end: 20210324
  7. VINCRISTINE SULFATE [Suspect]
     Active Substance: VINCRISTINE SULFATE
     Indication: Bone marrow conditioning regimen
     Dosage: DAILY DOSE: 19 MG
     Route: 042
     Dates: start: 20210420, end: 20210420
  8. VINCRISTINE SULFATE [Suspect]
     Active Substance: VINCRISTINE SULFATE
     Dosage: DAILY DOSE: 19 MG
     Route: 042
     Dates: start: 20210324, end: 20210324
  9. RITUXIMAB [Suspect]
     Active Substance: RITUXIMAB
     Indication: Bone marrow conditioning regimen
     Dosage: DAILY DOSE: 500 MG
     Route: 042
     Dates: start: 20210420, end: 20210420
  10. RITUXIMAB [Suspect]
     Active Substance: RITUXIMAB
     Dosage: DAILY DOSE: 500 MG
     Route: 042
     Dates: start: 20210324, end: 20210324
  11. POLARAMINE [Concomitant]
     Active Substance: DEXCHLORPHENIRAMINE MALEATE
     Indication: Prophylaxis
     Dosage: 5 MG, QD
     Route: 042
     Dates: start: 20210624, end: 20210628
  12. METHYLPREDNISOLONE ACETATE [Concomitant]
     Active Substance: METHYLPREDNISOLONE ACETATE
     Indication: Prophylaxis
     Dosage: 40 MG, TID
     Route: 042
     Dates: start: 20210624, end: 20210628
  13. VALACYCLOVIR HYDROCHLORIDE [Concomitant]
     Active Substance: VALACYCLOVIR HYDROCHLORIDE
     Indication: Infection prophylaxis
     Dosage: 500 MG, BID
     Route: 048
     Dates: start: 20210620, end: 20210728
  14. PREVYMIS [Concomitant]
     Active Substance: LETERMOVIR
     Indication: Infection prophylaxis
     Dosage: 480 MG, QD
     Route: 048
     Dates: start: 20210707, end: 20211015

REACTIONS (2)
  - Streptococcal bacteraemia [Recovering/Resolving]
  - COVID-19 [Recovering/Resolving]

NARRATIVE: CASE EVENT DATE: 20210718
